FAERS Safety Report 24194419 (Version 1)
Quarter: 2024Q3

REPORT INFORMATION
  Report Type: Spontaneous
  Country: US (occurrence: None)
  Receive Date: 20240808
  Receipt Date: 20240808
  Transmission Date: 20241016
  Serious: Yes (Other)
  Sender: Public
  Company Number: None

PATIENT
  Age: 26 Year
  Sex: Female
  Weight: 65.7 kg

DRUGS (4)
  1. MYFEMBREE [Suspect]
     Active Substance: ESTRADIOL HEMIHYDRATE\NORETHINDRONE ACETATE\RELUGOLIX
     Indication: Endometriosis
     Dosage: OTHER QUANTITY : 28 TABLET(S);?FREQUENCY : AT BEDTIME;?
     Route: 048
     Dates: start: 20230716, end: 20240131
  2. DROSPIRENONE [Concomitant]
     Active Substance: DROSPIRENONE
  3. Hair supplement from JS Health [Concomitant]
  4. Skin/Digestion supplement from JS Health [Concomitant]

REACTIONS (5)
  - Acne cystic [None]
  - Alopecia [None]
  - Scar [None]
  - Emotional distress [None]
  - Emotional disorder [None]

NARRATIVE: CASE EVENT DATE: 20231201
